FAERS Safety Report 10184789 (Version 2)
Quarter: 2014Q3

REPORT INFORMATION
  Report Type: Spontaneous
  Country: GB (occurrence: None)
  Receive Date: 20140519
  Receipt Date: 20140925
  Transmission Date: 20150326
  Serious: Yes (Hospitalization, Other)
  Sender: FDA-Public Use
  Company Number: KAD201405-000498

PATIENT
  Age: 67 Year
  Sex: Male
  Weight: 62 kg

DRUGS (8)
  1. ANBESOL REGULAR STRENGTH GEL [Concomitant]
     Active Substance: BENZOCAINE
  2. TRUVADA [Concomitant]
     Active Substance: EMTRICITABINE\TENOFOVIR DISOPROXIL FUMARATE
  3. INCIVO [Suspect]
     Active Substance: TELAPREVIR
     Indication: HEPATITIS C
     Route: 048
     Dates: start: 20140124, end: 20140318
  4. LOPERAMIDE [Concomitant]
     Active Substance: LOPERAMIDE
  5. PEGINTERFERON ALFA-2B (PEGINTERFERON ALFA-2B) [Suspect]
     Active Substance: PEGINTERFERON ALFA-2B
     Indication: HEPATITIS C
     Dates: start: 20140122, end: 20140711
  6. DOMPERIDONE [Concomitant]
     Active Substance: DOMPERIDONE
  7. EFAVIRENZ [Concomitant]
     Active Substance: EFAVIRENZ
  8. RIBAVIRIN (RIBAVIRIN) [Suspect]
     Active Substance: RIBAVIRIN
     Indication: HEPATITIS C
     Dosage: 800 MG, 400 MG TWO TIMES A DAY
     Dates: start: 20140122, end: 20140323

REACTIONS (3)
  - Periorbital oedema [None]
  - Anal abscess [None]
  - Rash [None]

NARRATIVE: CASE EVENT DATE: 20140325
